FAERS Safety Report 8556041-6 (Version None)
Quarter: 2012Q3

REPORT INFORMATION
  Report Type: 
  Country: None (occurrence: None)
  Receive Date: 20120719
  Receipt Date: 20120703
  Transmission Date: 20120928
  Serious: Yes (Life-Threatening, Hospitalization)
  Sender: FDA-Public Use
  Company Number: AMLO20120009

PATIENT
  Age: 60 Year
  Sex: Female

DRUGS (4)
  1. ASPIRIN [Concomitant]
  2. NIFEDIPINE [Concomitant]
  3. AMLODIPINE BESYLATE [Suspect]
     Indication: PRODUCT USED FOR UNKNOWN INDICATION
     Dosage: 20 MG, 2 IN 1 D, ORAL
     Route: 048
  4. METOPROLOL TARTRATE [Concomitant]

REACTIONS (10)
  - SELF-MEDICATION [None]
  - RESPIRATORY FAILURE [None]
  - TOXICITY TO VARIOUS AGENTS [None]
  - CIRCULATORY COLLAPSE [None]
  - BLOOD PRESSURE DECREASED [None]
  - LACTIC ACIDOSIS [None]
  - ILEUS PARALYTIC [None]
  - SMALL INTESTINAL OBSTRUCTION [None]
  - SHOCK [None]
  - OVERDOSE [None]
